FAERS Safety Report 13018517 (Version 1)
Quarter: 2016Q4

REPORT INFORMATION
  Report Type: Spontaneous
  Country: US (occurrence: US)
  Receive Date: 20161212
  Receipt Date: 20161212
  Transmission Date: 20170207
  Serious: No
  Sender: FDA-Public Use
  Company Number: US-CELGENEUS-USA-2016120832

PATIENT
  Age: 73 Year
  Sex: Female
  Weight: 46.76 kg

DRUGS (1)
  1. REVLIMID [Suspect]
     Active Substance: LENALIDOMIDE
     Indication: PLASMA CELL MYELOMA
     Dosage: 15 MG
     Route: 048
     Dates: start: 20161108

REACTIONS (4)
  - Pain [Unknown]
  - Drug dose omission [Unknown]
  - Asthenia [Unknown]
  - Joint swelling [Unknown]

NARRATIVE: CASE EVENT DATE: 201611
